FAERS Safety Report 12713971 (Version 1)
Quarter: 2016Q3

REPORT INFORMATION
  Report Type: Spontaneous
  Country: NO (occurrence: NO)
  Receive Date: 20160905
  Receipt Date: 20160905
  Transmission Date: 20161109
  Serious: Yes (Death)
  Sender: FDA-Public Use
  Company Number: NO-ORION CORPORATION ORION PHARMA-16_00001886

PATIENT
  Age: 91 Year
  Sex: Female

DRUGS (5)
  1. FURADANTIN [Concomitant]
     Active Substance: NITROFURANTOIN
     Indication: PROPHYLAXIS URINARY TRACT INFECTION
     Route: 065
     Dates: start: 201601
  2. METHOTREXATE (TRADE NAME UNKNOWN) [Suspect]
     Active Substance: METHOTREXATE
     Indication: ARTHRITIS
     Route: 065
  3. SOMAC [Concomitant]
     Active Substance: PANTOPRAZOLE SODIUM
     Route: 065
  4. PARACET [Concomitant]
     Active Substance: ACETAMINOPHEN
     Route: 065
  5. FOLSYRE NAF [Concomitant]
     Active Substance: FOLIC ACID
     Route: 065

REACTIONS (5)
  - Dysphagia [Unknown]
  - Mouth ulceration [Unknown]
  - Oropharyngeal pain [Unknown]
  - Pancytopenia [Fatal]
  - Pneumonia [Fatal]
